FAERS Safety Report 8032533-3 (Version None)
Quarter: 2011Q4

REPORT INFORMATION
  Report Type: 
  Country: None (occurrence: None)
  Receive Date: 20111228
  Receipt Date: 20111219
  Transmission Date: 20120403
  Serious: Yes (Hospitalization, Disabling)
  Sender: FDA-Public Use
  Company Number: 2011SP059056

PATIENT
  Age: 63 Year
  Sex: Male

DRUGS (7)
  1. ZOLPIDEM TARTRATE [Concomitant]
  2. ETHYL LOFLAZEPATE [Concomitant]
  3. BROTIZOLAM [Concomitant]
  4. MIRTAZAPINE [Suspect]
     Indication: DEPRESSION
     Dosage: 15 MG; QD; PO, 30 MG; QD; PO, 15 MG; QD; PO
     Route: 048
     Dates: start: 20110210, end: 20110309
  5. MIRTAZAPINE [Suspect]
     Indication: DEPRESSION
     Dosage: 15 MG; QD; PO, 30 MG; QD; PO, 15 MG; QD; PO
     Route: 048
     Dates: start: 20110310, end: 20110406
  6. MIRTAZAPINE [Suspect]
     Indication: DEPRESSION
     Dosage: 15 MG; QD; PO, 30 MG; QD; PO, 15 MG; QD; PO
     Route: 048
     Dates: start: 20110407, end: 20110509
  7. PAXIL [Concomitant]

REACTIONS (4)
  - INCREASED APPETITE [None]
  - GLYCOSYLATED HAEMOGLOBIN INCREASED [None]
  - WEIGHT INCREASED [None]
  - GLUCOSE TOLERANCE IMPAIRED [None]
